FAERS Safety Report 14036776 (Version 2)
Quarter: 2017Q4

REPORT INFORMATION
  Report Type: Report from Study
  Country: None (occurrence: TR)
  Receive Date: 20171003
  Receipt Date: 20171004
  Transmission Date: 20180321
  Serious: Yes (Hospitalization)
  Sender: FDA-Public Use
  Company Number: TR-ABBVIE-17K-161-2119268-00

PATIENT
  Age: 59 Year
  Sex: Female

DRUGS (4)
  1. DESYREL [Concomitant]
     Active Substance: TRAZODONE HYDROCHLORIDE
     Indication: SLEEP DISORDER
     Route: 048
  2. PK-MERZ [Concomitant]
     Active Substance: AMANTADINE
     Indication: PARKINSON^S DISEASE
     Route: 048
     Dates: start: 2012
  3. DUODOPA [Suspect]
     Active Substance: CARBIDOPA\LEVODOPA
     Indication: PARKINSON^S DISEASE
     Dosage: CONTINUOUS DOSE: 2.00 ML?EXTRA DOSE: 0.40 ML
     Route: 050
     Dates: start: 20170215, end: 20170915
  4. CONCOR [Concomitant]
     Active Substance: BISOPROLOL FUMARATE
     Indication: HYPERTENSION
     Route: 048

REACTIONS (3)
  - Retching [Recovered/Resolved]
  - Device dislocation [Recovered/Resolved]
  - Vomiting [Unknown]

NARRATIVE: CASE EVENT DATE: 20170919
